FAERS Safety Report 21967826 (Version 1)
Quarter: 2023Q1

REPORT INFORMATION
  Report Type: Spontaneous
  Country: US (occurrence: None)
  Receive Date: 20230207
  Receipt Date: 20230207
  Transmission Date: 20230417
  Serious: No
  Sender: FDA-Public Use
  Company Number: None

PATIENT
  Age: 76 Year
  Sex: Male
  Weight: 72.57 kg

DRUGS (4)
  1. PAXLOVID [Suspect]
     Active Substance: NIRMATRELVIR\RITONAVIR
     Indication: COVID-19 treatment
     Dosage: FREQUENCY : TWICE A DAY;?
     Route: 048
     Dates: start: 20230120, end: 20230122
  2. ATORVASTATIN [Concomitant]
     Active Substance: ATORVASTATIN
  3. ASPIRIN [Concomitant]
     Active Substance: ASPIRIN
  4. FISH OIL [Concomitant]
     Active Substance: FISH OIL

REACTIONS (5)
  - Abdominal pain [None]
  - Diarrhoea [None]
  - Melaena [None]
  - Back pain [None]
  - SARS-CoV-2 test negative [None]

NARRATIVE: CASE EVENT DATE: 20230121
